FAERS Safety Report 4489862-X (Version None)
Quarter: 2004Q4

REPORT INFORMATION
  Report Type: 
  Country: None (occurrence: None)
  Receive Date: 20041026
  Receipt Date: 20040528
  Transmission Date: 20050328
  Serious: Yes (Hospitalization)
  Sender: FDA-Public Use
  Company Number: M2004-1572

PATIENT
  Age: 44 Year
  Sex: Female

DRUGS (5)
  1. AMITRIPTYLINE HCL [Suspect]
     Indication: FIBROMYALGIA
     Dosage: 200MG DAY
  2. AMITRIPTYLINE HCL [Suspect]
     Indication: SLEEP DISORDER
     Dosage: 200MG DAY
  3. FLUCONAZOLE [Suspect]
     Indication: ORAL CANDIDIASIS
     Dosage: 100MG DAY
  4. METOPROLOL TARTRATE [Concomitant]
  5. MONONITRATE (ISOSORBIDE MONONITRATE) [Concomitant]

REACTIONS (12)
  - AGITATION [None]
  - ANTICHOLINERGIC SYNDROME [None]
  - BLOOD BICARBONATE INCREASED [None]
  - CONFUSIONAL STATE [None]
  - DISORIENTATION [None]
  - DRUG INTERACTION [None]
  - DRUG LEVEL INCREASED [None]
  - ELECTROCARDIOGRAM QT CORRECTED INTERVAL PROLONGED [None]
  - LETHARGY [None]
  - PCO2 INCREASED [None]
  - PO2 DECREASED [None]
  - RESTLESSNESS [None]
